FAERS Safety Report 18964347 (Version 2)
Quarter: 2021Q3

REPORT INFORMATION
  Report Type: Spontaneous
  Country: US (occurrence: US)
  Receive Date: 20210303
  Receipt Date: 20210702
  Transmission Date: 20211014
  Serious: Yes (Hospitalization, Other)
  Sender: FDA-Public Use
  Company Number: US-INCYTE CORPORATION-2021IN001449

PATIENT

DRUGS (2)
  1. JAKAFI [Suspect]
     Active Substance: RUXOLITINIB
     Indication: POLYCYTHAEMIA VERA
     Dosage: 5 MILLIGRAM, BID
     Route: 048
     Dates: start: 20150604
  2. JAKAFI [Suspect]
     Active Substance: RUXOLITINIB
     Dosage: 5 MILLIGRAM, BID
     Route: 048
     Dates: start: 20150605

REACTIONS (6)
  - Heart rate decreased [Unknown]
  - Asthenia [Unknown]
  - Cardiac disorder [Unknown]
  - COVID-19 [Unknown]
  - Pulmonary fibrosis [Unknown]
  - Fluid retention [Unknown]

NARRATIVE: CASE EVENT DATE: 202102
